FAERS Safety Report 23030409 (Version 1)
Quarter: 2023Q4

REPORT INFORMATION
  Report Type: Spontaneous
  Country: CN (occurrence: None)
  Receive Date: 20231005
  Receipt Date: 20231005
  Transmission Date: 20240110
  Serious: Yes (Other)
  Sender: FDA-Public Use
  Company Number: CN-ROCHE-3429677

PATIENT
  Age: 5 Year
  Sex: Female
  Weight: 20 kg

DRUGS (2)
  1. ACTEMRA [Suspect]
     Active Substance: TOCILIZUMAB
     Indication: Still^s disease
     Route: 041
     Dates: start: 20230908, end: 20230908
  2. SODIUM CHLORIDE [Concomitant]
     Active Substance: SODIUM CHLORIDE

REACTIONS (3)
  - Sinus tachycardia [Recovering/Resolving]
  - Myocardial necrosis marker increased [Recovering/Resolving]
  - Myocardial injury [Unknown]

NARRATIVE: CASE EVENT DATE: 20230908
